FAERS Safety Report 9637689 (Version 1)
Quarter: 2013Q4

REPORT INFORMATION
  Report Type: Spontaneous
  Country: TR (occurrence: None)
  Receive Date: 20131018
  Receipt Date: 20131018
  Transmission Date: 20140711
  Serious: Yes (Hospitalization)
  Sender: FDA-Public Use
  Company Number: 2013AP008992

PATIENT
  Age: 46 Year
  Sex: Female

DRUGS (10)
  1. RISPERIDONE [Suspect]
     Indication: BIPOLAR DISORDER
  2. PAROXETINE (PAROXETINE) [Suspect]
     Indication: BIPOLAR DISORDER
  3. LITHIUM (LITHIUM) [Suspect]
     Indication: BIPOLAR DISORDER
  4. QUETIAPINE [Suspect]
     Indication: BIPOLAR DISORDER
  5. ARIPIRAZOLE [Suspect]
     Indication: BIPOLAR DISORDER
  6. VALPROIC ACID [Suspect]
     Indication: CONVULSION
  7. PHENYTOIN [Suspect]
     Indication: CONVULSION
  8. MIDAZOLAM (MIDAZOLAM) [Suspect]
     Indication: CONVULSION
  9. LEVETIRACETAM [Suspect]
     Indication: CONVULSION
  10. DIAZEPAM [Suspect]
     Indication: CONVULSION

REACTIONS (28)
  - Toxicity to various agents [None]
  - Neurotoxicity [None]
  - Confusional state [None]
  - Musculoskeletal stiffness [None]
  - Diarrhoea [None]
  - Pyrexia [None]
  - Extrapyramidal disorder [None]
  - Urinary tract infection [None]
  - Muscle rigidity [None]
  - Haemodialysis [None]
  - Grand mal convulsion [None]
  - Hypotension [None]
  - Respiratory failure [None]
  - Blood creatine phosphokinase increased [None]
  - Myoglobin blood increased [None]
  - Blood alkaline phosphatase increased [None]
  - Leukocytosis [None]
  - Mutism [None]
  - Lack of spontaneous speech [None]
  - Partial seizures [None]
  - Myoclonus [None]
  - Areflexia [None]
  - Quadriparesis [None]
  - Peripheral sensorimotor neuropathy [None]
  - Axonal neuropathy [None]
  - Critical illness polyneuropathy [None]
  - Ataxia [None]
  - Dysarthria [None]
